FAERS Safety Report 20233932 (Version 1)
Quarter: 2021Q4

REPORT INFORMATION
  Report Type: Spontaneous
  Country: US (occurrence: US)
  Receive Date: 20211227
  Receipt Date: 20211227
  Transmission Date: 20220303
  Serious: No
  Sender: FDA-Public Use
  Company Number: US-PFIZER INC-2015436745

PATIENT
  Age: 42 Year
  Sex: Female

DRUGS (25)
  1. LYRICA [Suspect]
     Active Substance: PREGABALIN
     Indication: Fibromyalgia
     Dosage: 200 MG, 3X/DAY
     Route: 048
     Dates: start: 20170118
  2. LYRICA [Suspect]
     Active Substance: PREGABALIN
     Indication: Back pain
  3. ABILIFY [Concomitant]
     Active Substance: ARIPIPRAZOLE
     Dosage: 15 MG, DAILY
     Route: 048
     Dates: start: 20170118
  4. ABILIFY [Concomitant]
     Active Substance: ARIPIPRAZOLE
     Dosage: 20 MG, DAILY
     Route: 048
  5. COGENTIN [Concomitant]
     Active Substance: BENZTROPINE MESYLATE
     Dosage: 0.5 MG, DAILY
     Route: 048
  6. KLONOPIN [Concomitant]
     Active Substance: CLONAZEPAM
     Dosage: 0.5 MG, 2X/DAY
     Route: 048
  7. PROZAC [Concomitant]
     Active Substance: FLUOXETINE HYDROCHLORIDE
     Dosage: 20 MG, DAILY
     Route: 048
  8. FLOVENT HFA [Concomitant]
     Active Substance: FLUTICASONE PROPIONATE
     Dosage: 88 UG, DAILY (44 MCG/ACT AEROSOL; TAKE 2 PUFFS BY INHALATION DAILY)
     Route: 055
     Dates: start: 20170118
  9. FLONASE [Concomitant]
     Active Substance: FLUTICASONE PROPIONATE
     Dosage: 100 UG, DAILY (1 SPRAY BY NASAL ROUTE DAILY 1 SPRAY IN EACH NOSTRIL )
     Route: 045
     Dates: start: 20170118
  10. NORCO [Concomitant]
     Active Substance: ACETAMINOPHEN\HYDROCODONE BITARTRATE
     Dosage: 1 DF, AS NEEDED (HYDROCODONE BITARTRATE: 5 MG, PARACETAMOL: 325 MG)
     Route: 048
  11. COMBIVENT RESPIMAT [Concomitant]
     Active Substance: ALBUTEROL SULFATE\IPRATROPIUM BROMIDE
     Dosage: 1 DF, AS NEEDED (IPRATROPIUM BROMIDE: 20 MCG, SALBUTAMOL SULFATE: 100 MCG) (TAKE 1 PUFF BY INHALATI)
     Route: 055
     Dates: start: 20170118
  12. CLARITIN [Concomitant]
     Active Substance: LORATADINE
     Dosage: 10 MG, AS NEEDED
     Route: 048
  13. REMERON [Concomitant]
     Active Substance: MIRTAZAPINE
     Dosage: 15 MG, 1X/DAY (EVERY EVENING AT 6 PM )
     Route: 048
     Dates: start: 20170118
  14. REMERON [Concomitant]
     Active Substance: MIRTAZAPINE
     Dosage: 30 MG, 1X/DAY, (BEDTIME)
     Route: 048
  15. PROTONIX [Concomitant]
     Active Substance: PANTOPRAZOLE SODIUM
     Dosage: 40 MG, DAILY
     Route: 048
  16. TOPAMAX [Concomitant]
     Active Substance: TOPIRAMATE
     Dosage: 50 MG, 2X/DAY
     Route: 048
     Dates: start: 20170118
  17. BENZTROPINE [Concomitant]
     Active Substance: BENZTROPINE
     Dosage: 0.5 MG, DAILY
     Route: 048
     Dates: start: 20170118
  18. BENZTROPINE [Concomitant]
     Active Substance: BENZTROPINE
     Dosage: 1 MG, DAILY
     Route: 048
  19. CLONAZEPAM [Concomitant]
     Active Substance: CLONAZEPAM
     Dosage: 0.5 MG, 2X/DAY
     Route: 048
     Dates: start: 20170118
  20. ACETAMINOPHEN\HYDROCODONE [Concomitant]
     Active Substance: ACETAMINOPHEN\HYDROCODONE
     Dosage: 1 DF, AS NEEDED (HYDROCODONE BITARTRATE: 5MG, PARACETAMOL: 325 MG) (EVERY 6 HOURS AS NEEDED)
     Route: 048
     Dates: start: 20170118
  21. VIEKIRA PAK [Concomitant]
     Active Substance: DASABUVIR\OMBITASVIR\PARITAPREVIR\RITONAVIR
     Dosage: 4 DF, DAILY (DASABUVIR SODIUM MONOHYDRATE: 250 MG, OMBITASVIR: 12.5 MG, PARITAPREVIR: 75 MG, RITONA)
     Route: 048
  22. RIBAVIRIN [Concomitant]
     Active Substance: RIBAVIRIN
     Dosage: 600 MG, 2X/DAY (FOR 12 WEEKS (IN COMBINATION WITH VIEKIRA))
  23. LORATADINE [Concomitant]
     Active Substance: LORATADINE
     Dosage: 10 MG, AS NEEDED
     Route: 048
     Dates: start: 20170118
  24. LORATADINE [Concomitant]
     Active Substance: LORATADINE
     Dosage: 10 MG, DAILY
     Route: 048
  25. INFLUENZA VIRUS VACCINE [Concomitant]
     Active Substance: INFLUENZA VIRUS VACCINE
     Dosage: 0.5 ML, UNK (SPLIT QUAD 0.5 ML SUSPENSION)
     Route: 030

REACTIONS (1)
  - Illness [Unknown]
